FAERS Safety Report 17289931 (Version 1)
Quarter: 2020Q1

REPORT INFORMATION
  Report Type: Report from Study
  Country: IT (occurrence: IT)
  Receive Date: 20200120
  Receipt Date: 20200120
  Transmission Date: 20200409
  Serious: Yes (Hospitalization)
  Sender: FDA-Public Use
  Company Number: IT-MYLANLABS-2020M1004802

PATIENT
  Age: 71 Year
  Sex: Male

DRUGS (5)
  1. CARDIOASPIRIN [Concomitant]
     Active Substance: ASPIRIN
     Dosage: 100 MILLIGRAM
     Route: 048
  2. AMIODARONE [Concomitant]
     Active Substance: AMIODARONE
     Dosage: 200 MILLIGRAM
  3. FUROSEMIDE. [Suspect]
     Active Substance: FUROSEMIDE
     Indication: CARDIAC FAILURE
     Dosage: 500 MILLIGRAM, QD
     Route: 048
  4. CANRENONE [Concomitant]
     Active Substance: CANRENONE
     Dosage: 50 MILLIGRAM
  5. BISOPROLOL FUMARATE. [Concomitant]
     Active Substance: BISOPROLOL FUMARATE
     Dosage: 1.25 MILLIGRAM
     Route: 048

REACTIONS (4)
  - Blood sodium decreased [Recovering/Resolving]
  - Haematuria [Recovering/Resolving]
  - Dysuria [Recovering/Resolving]
  - Pollakiuria [Recovering/Resolving]

NARRATIVE: CASE EVENT DATE: 20190903
